FAERS Safety Report 9991929 (Version 1)
Quarter: 2014Q1

REPORT INFORMATION
  Report Type: Spontaneous
  Country: IT (occurrence: IT)
  Receive Date: 20140310
  Receipt Date: 20140310
  Transmission Date: 20141002
  Serious: Yes (Death, Other)
  Sender: FDA-Public Use
  Company Number: IT-JNJFOC-20140217146

PATIENT
  Sex: 0

DRUGS (1)
  1. RISPERIDONE [Suspect]
     Indication: PRODUCT USED FOR UNKNOWN INDICATION
     Route: 065

REACTIONS (13)
  - Death [Fatal]
  - Treatment failure [Unknown]
  - Extrapyramidal disorder [Unknown]
  - Cerebrovascular accident [Unknown]
  - Epilepsy [Unknown]
  - Pancreatitis [Unknown]
  - Pneumonia [Unknown]
  - Hypertensive crisis [Unknown]
  - Hypoalbuminaemia [Unknown]
  - Hallucination [Unknown]
  - Orthostatic hypotension [Unknown]
  - Nausea [Unknown]
  - Sleep disorder [Unknown]
